FAERS Safety Report 5270289-8 (Version None)
Quarter: 2007Q1

REPORT INFORMATION
  Report Type: 
  Country: None (occurrence: None)
  Receive Date: 20070320
  Receipt Date: 20070308
  Transmission Date: 20070707
  Serious: Yes (Hospitalization, Other)
  Sender: FDA-Public Use
  Company Number: US-PFIZER INC-2007019493

PATIENT
  Sex: Female
  Weight: 99.8 kg

DRUGS (3)
  1. GABAPENTIN [Suspect]
     Indication: NEUROPATHY
     Dates: start: 20061111, end: 20070101
  2. ALBUTEROL [Concomitant]
     Route: 055
  3. ADVAIR DISKUS 100/50 [Concomitant]

REACTIONS (3)
  - ABASIA [None]
  - DEPRESSION [None]
  - DYSSTASIA [None]
